FAERS Safety Report 5383426-1 (Version None)
Quarter: 2007Q3

REPORT INFORMATION
  Report Type: 
  Country: None (occurrence: None)
  Receive Date: 20070706
  Receipt Date: 20070621
  Transmission Date: 20080115
  Serious: Yes (Other)
  Sender: FDA-Public Use
  Company Number: 2007EU000755

PATIENT
  Age: 52 Year
  Sex: Male

DRUGS (4)
  1. PROGRAF [Suspect]
     Indication: FISTULA
     Dosage: 0.1 %, BID, TOPICAL
     Route: 061
     Dates: start: 20031118, end: 20031216
  2. METHOTREXATE [Concomitant]
  3. AMINOSALICYLIC ACID (AMINOSALICYLIC ACID) [Concomitant]
  4. CORTICOSTEROIDS [Concomitant]

REACTIONS (1)
  - RECTAL ABSCESS [None]
